FAERS Safety Report 6599992-4 (Version None)
Quarter: 2010Q1

REPORT INFORMATION
  Report Type: 
  Country: None (occurrence: None)
  Receive Date: 20100224
  Receipt Date: 20100212
  Transmission Date: 20100710
  Serious: Yes (Death)
  Sender: FDA-Public Use
  Company Number: RS-GENENTECH-298288

PATIENT
  Sex: Male

DRUGS (5)
  1. RITUXIMAB [Suspect]
     Indication: B-CELL LYMPHOMA
     Dosage: 700 MG, Q3W
     Route: 042
     Dates: start: 20080709, end: 20081208
  2. CYCLOPHOSPHAMIDE [Suspect]
     Indication: NON-HODGKIN'S LYMPHOMA
     Dosage: 1350 MG, Q3W
     Route: 042
     Dates: start: 20080709, end: 20081027
  3. VINCRISTINE [Suspect]
     Indication: NON-HODGKIN'S LYMPHOMA
     Dosage: 2 MG, Q3W
     Route: 042
     Dates: start: 20080709, end: 20081027
  4. DOXORUBICIN [Concomitant]
     Indication: PREMEDICATION
     Dosage: 80 MG, Q3W
     Route: 042
  5. PRONISON [Concomitant]
     Indication: PREMEDICATION
     Dosage: 80 MG, Q3W
     Route: 042
     Dates: start: 20080709, end: 20081027

REACTIONS (1)
  - ENCEPHALITIS [None]
